FAERS Safety Report 7928619-1 (Version None)
Quarter: 2011Q4

REPORT INFORMATION
  Report Type: 
  Country: None (occurrence: None)
  Receive Date: 20111118
  Receipt Date: 20111110
  Transmission Date: 20120403
  Serious: Yes (Life-Threatening, Hospitalization)
  Sender: FDA-Public Use
  Company Number: JP-AMGEN-JPNCT2011039431

PATIENT
  Age: 60 Year
  Sex: Male
  Weight: 57 kg

DRUGS (8)
  1. IRINOTECAN HYDROCHLORIDE [Suspect]
     Indication: COLORECTAL CANCER
     Dosage: 250 MG, Q2WK
     Route: 041
     Dates: start: 20110707
  2. URSO 250 [Concomitant]
     Route: 048
  3. MINOCYCLINE HCL [Concomitant]
     Route: 048
  4. PANITUMUMAB [Suspect]
     Indication: COLORECTAL CANCER
     Dosage: 380 MG, Q2WK
     Route: 041
     Dates: start: 20110707
  5. FAMOTIDINE [Concomitant]
     Route: 048
  6. LOPERAMIDE HCL [Concomitant]
     Route: 048
  7. PANITUMUMAB [Suspect]
     Dosage: UNK, Q2WK
     Route: 041
     Dates: start: 20110915
  8. URINORM [Concomitant]
     Route: 048

REACTIONS (4)
  - NEUTROPHIL COUNT DECREASED [None]
  - ANAEMIA [None]
  - DIARRHOEA [None]
  - PYREXIA [None]
